FAERS Safety Report 23409206 (Version 1)
Quarter: 2024Q1

REPORT INFORMATION
  Report Type: Spontaneous
  Country: US (occurrence: US)
  Receive Date: 20240117
  Receipt Date: 20240117
  Transmission Date: 20240410
  Serious: Yes (Hospitalization, Other)
  Sender: FDA-Public Use
  Company Number: US-PFIZER INC-PV202400003767

PATIENT
  Age: 31 Year
  Sex: Female

DRUGS (1)
  1. DEXMEDETOMIDINE HYDROCHLORIDE [Suspect]
     Active Substance: DEXMEDETOMIDINE HYDROCHLORIDE
     Indication: Analgesic therapy
     Dosage: UNK

REACTIONS (2)
  - Atrioventricular block second degree [Recovered/Resolved]
  - Off label use [Unknown]
